FAERS Safety Report 15734150 (Version 1)
Quarter: 2018Q4

REPORT INFORMATION
  Report Type: Spontaneous
  Country: US (occurrence: US)
  Receive Date: 20181218
  Receipt Date: 20181218
  Transmission Date: 20190205
  Serious: Yes (Hospitalization, Other)
  Sender: FDA-Public Use
  Company Number: US-ROCHE-2231208

PATIENT
  Age: 65 Year
  Sex: Male
  Weight: 118.04 kg

DRUGS (6)
  1. TYLENOL [Concomitant]
     Active Substance: ACETAMINOPHEN
     Indication: PREMEDICATION
     Route: 048
     Dates: start: 201804, end: 201804
  2. SOLU-MEDROL [Concomitant]
     Active Substance: METHYLPREDNISOLONE SODIUM SUCCINATE
     Indication: PREMEDICATION
     Route: 065
     Dates: start: 201804, end: 201804
  3. BENADRYL [Concomitant]
     Active Substance: DIPHENHYDRAMINE HYDROCHLORIDE
     Indication: PREMEDICATION
     Route: 065
     Dates: start: 201804, end: 201804
  4. RITUXAN [Suspect]
     Active Substance: RITUXIMAB
     Indication: PRIMARY PROGRESSIVE MULTIPLE SCLEROSIS
     Route: 042
     Dates: start: 201804, end: 201804
  5. AMPYRA [Concomitant]
     Active Substance: DALFAMPRIDINE
     Dosage: STARTED ABOUT 2 YEARS AGO AT LEAST
     Route: 048
  6. PROVIGIL [Concomitant]
     Active Substance: MODAFINIL
     Dosage: STARTED AT LEAST 2 YRS AGO
     Route: 048

REACTIONS (5)
  - Fall [Unknown]
  - Pharyngeal disorder [Recovered/Resolved]
  - Intentional product use issue [Unknown]
  - Off label use [Unknown]
  - Lower limb fracture [Recovered/Resolved]

NARRATIVE: CASE EVENT DATE: 201804
